FAERS Safety Report 7796994-7 (Version None)
Quarter: 2011Q4

REPORT INFORMATION
  Report Type: 
  Country: None (occurrence: None)
  Receive Date: 20111005
  Receipt Date: 20111005
  Transmission Date: 20120403
  Serious: Yes (Other)
  Sender: FDA-Public Use
  Company Number: None

PATIENT
  Age: 53 Year
  Sex: Male
  Weight: 78.471 kg

DRUGS (1)
  1. CYMBALTA [Suspect]
     Indication: FIBROMYALGIA
     Dosage: 20 MG
     Route: 048
     Dates: start: 20101001, end: 20110926

REACTIONS (12)
  - EYE MOVEMENT DISORDER [None]
  - ABNORMAL DREAMS [None]
  - LOSS OF LIBIDO [None]
  - VERTIGO [None]
  - UPPER RESPIRATORY TRACT IRRITATION [None]
  - DRUG WITHDRAWAL SYNDROME [None]
  - FEELING HOT [None]
  - NIGHT SWEATS [None]
  - SLEEP DISORDER [None]
  - TINNITUS [None]
  - COUGH [None]
  - MEMORY IMPAIRMENT [None]
